FAERS Safety Report 21009203 (Version 4)
Quarter: 2023Q4

REPORT INFORMATION
  Report Type: Report from Study
  Country: NL (occurrence: NL)
  Receive Date: 20220627
  Receipt Date: 20231004
  Transmission Date: 20240110
  Serious: Yes (Other)
  Sender: FDA-Public Use
  Company Number: NL-MYLANLABS-2022M1046947

PATIENT
  Sex: Female

DRUGS (1)
  1. GLATIRAMER ACETATE [Suspect]
     Active Substance: GLATIRAMER ACETATE
     Indication: Relapsing multiple sclerosis
     Dosage: 40 MILLIGRAM, 3XW
     Route: 058

REACTIONS (7)
  - Syncope [Recovered/Resolved]
  - Abdominal pain upper [Recovering/Resolving]
  - Dizziness [Recovered/Resolved]
  - Pyrexia [Recovering/Resolving]
  - Immediate post-injection reaction [Recovered/Resolved]
  - Dyspnoea [Recovered/Resolved]
  - Chills [Recovered/Resolved]

NARRATIVE: CASE EVENT DATE: 20220617
